FAERS Safety Report 13336349 (Version 4)
Quarter: 2017Q2

REPORT INFORMATION
  Report Type: Report from Study
  Country: DE (occurrence: DE)
  Receive Date: 20170315
  Receipt Date: 20170522
  Transmission Date: 20170830
  Serious: Yes (Hospitalization)
  Sender: FDA-Public Use
  Company Number: DE-ROCHE-1905661

PATIENT
  Age: 55 Year
  Sex: Male
  Weight: 91 kg

DRUGS (8)
  1. RINGER SOLUTION [Concomitant]
     Indication: CHEMOTHERAPY
     Route: 065
     Dates: start: 20161117
  2. GRANISETRON [Concomitant]
     Active Substance: GRANISETRON
     Indication: CHEMOTHERAPY
     Route: 065
     Dates: start: 20161117
  3. PACLITAXEL. [Suspect]
     Active Substance: PACLITAXEL
     Indication: NON-SMALL CELL LUNG CANCER STAGE IV
     Dosage: MOST RECENT DOSE: 22/FEB/2017 (404 MG).
     Route: 042
     Dates: start: 20161117
  4. ATEZOLIZUMAB [Suspect]
     Active Substance: ATEZOLIZUMAB
     Indication: NON-SMALL CELL LUNG CANCER STAGE IV
     Dosage: MOST RECENT DOSE: 22/FEB/2017.
     Route: 042
     Dates: start: 20161117
  5. CLEMASTIN [Concomitant]
     Active Substance: CLEMASTINE
     Indication: CHEMOTHERAPY
     Route: 065
     Dates: start: 20161117
  6. RANITIDIN [Concomitant]
     Active Substance: RANITIDINE HYDROCHLORIDE
     Indication: CHEMOTHERAPY
     Route: 065
     Dates: start: 20161117
  7. CARBOPLATIN. [Suspect]
     Active Substance: CARBOPLATIN
     Indication: NON-SMALL CELL LUNG CANCER STAGE IV
     Dosage: MOST RECENT DOSE: 22/FEB/2017 (794.58 MG).?AREA UNDER THE CONCENTRATION (AUC) 6 AS PER PROTOCOL
     Route: 042
     Dates: start: 20161117
  8. RAMIPRIL. [Concomitant]
     Active Substance: RAMIPRIL
     Indication: HYPERTENSION
     Route: 065
     Dates: start: 201609

REACTIONS (1)
  - Herpes zoster [Recovered/Resolved with Sequelae]

NARRATIVE: CASE EVENT DATE: 20170307
